FAERS Safety Report 12923847 (Version 2)
Quarter: 2016Q4

REPORT INFORMATION
  Report Type: Spontaneous
  Country: IT (occurrence: IT)
  Receive Date: 20161108
  Receipt Date: 20161205
  Transmission Date: 20170207
  Serious: Yes (Other)
  Sender: FDA-Public Use
  Company Number: IT-PFIZER INC-2016516380

PATIENT
  Age: 46 Year
  Sex: Male

DRUGS (3)
  1. METHADONE [Concomitant]
     Active Substance: METHADONE HYDROCHLORIDE
     Dosage: UNK
  2. RIVOTRIL [Suspect]
     Active Substance: CLONAZEPAM
     Indication: DRUG ABUSE
     Dosage: 2 DF, TOTAL
     Route: 048
     Dates: start: 20150802, end: 20150802
  3. TAVOR (LORAZEPAM) [Suspect]
     Active Substance: LORAZEPAM
     Indication: DRUG ABUSE
     Dosage: 20 GTT, TOTAL
     Route: 048
     Dates: start: 20150802, end: 20150802

REACTIONS (7)
  - Haemoglobin decreased [Unknown]
  - Nausea [Recovered/Resolved]
  - Drug abuse [Recovered/Resolved]
  - Dyspnoea [Recovered/Resolved]
  - Headache [Recovered/Resolved]
  - Abdominal pain upper [Recovered/Resolved]
  - Myalgia [Unknown]

NARRATIVE: CASE EVENT DATE: 20150802
